FAERS Safety Report 4526261-6 (Version None)
Quarter: 2004Q4

REPORT INFORMATION
  Report Type: 
  Country: None (occurrence: None)
  Receive Date: 20041206
  Receipt Date: 20041122
  Transmission Date: 20050328
  Serious: Yes (Hospitalization)
  Sender: FDA-Public Use
  Company Number: 04P-056-0281274-00

PATIENT
  Age: 54 Year
  Sex: Female
  Weight: 62 kg

DRUGS (2)
  1. HUMIRA [Suspect]
     Indication: RHEUMATOID ARTHRITIS
     Dosage: 40 MG , SUBCUTANEOUS
     Route: 058
     Dates: start: 20040201, end: 20040201
  2. HUMIRA [Concomitant]

REACTIONS (6)
  - ASCITES [None]
  - BURSITIS [None]
  - LABORATORY TEST ABNORMAL [None]
  - POLYMERASE CHAIN REACTION [None]
  - PURULENCE [None]
  - RED BLOOD CELL SEDIMENTATION RATE INCREASED [None]
